FAERS Safety Report 6998523-4 (Version None)
Quarter: 2010Q3

REPORT INFORMATION
  Report Type: 
  Country: None (occurrence: None)
  Receive Date: 20100920
  Receipt Date: 20090721
  Transmission Date: 20110219
  Serious: Yes (Other)
  Sender: FDA-Public Use
  Company Number: US-ASTRAZENECA-2007UW01954

PATIENT
  Age: 16035 Day
  Sex: Male
  Weight: 119.3 kg

DRUGS (11)
  1. SEROQUEL [Suspect]
     Indication: SLEEP DISORDER
     Dosage: 25 MG ONE TO TWO AT BEDTIME
     Route: 048
     Dates: start: 20050127, end: 20060404
  2. SEROQUEL [Suspect]
     Indication: DEPRESSION
     Dosage: 25 MG ONE TO TWO AT BEDTIME
     Route: 048
     Dates: start: 20050127, end: 20060404
  3. ZOLOFT [Concomitant]
     Dates: start: 19960101
  4. CLONAZEPAM [Concomitant]
     Dosage: 0.5 MG 1 HS, PRN PER DAY
     Dates: start: 20050113, end: 20050127
  5. CELEXA [Concomitant]
     Dosage: 20 MG-40 MG
     Dates: start: 20021028
  6. WELLBUTRIN XL [Concomitant]
     Dosage: 150 MG-300MG
     Dates: start: 20040609
  7. LEVITRA [Concomitant]
  8. TRAZODONE HCL [Concomitant]
  9. CELEBREX [Concomitant]
     Route: 048
     Dates: start: 20060504
  10. ALBUTEROL [Concomitant]
  11. TRICOR [Concomitant]
     Dates: start: 20060504

REACTIONS (5)
  - BLOOD CHOLESTEROL INCREASED [None]
  - ERECTILE DYSFUNCTION [None]
  - SEXUAL DYSFUNCTION [None]
  - SUICIDAL IDEATION [None]
  - TYPE 2 DIABETES MELLITUS [None]
